FAERS Safety Report 15027655 (Version 3)
Quarter: 2018Q3

REPORT INFORMATION
  Report Type: Report from Study
  Country: FR (occurrence: FR)
  Receive Date: 20180619
  Receipt Date: 20180913
  Transmission Date: 20181010
  Serious: Yes (Death, Hospitalization, Other)
  Sender: FDA-Public Use
  Company Number: FR-JAZZ-2018-FR-009610

PATIENT

DRUGS (4)
  1. CICLOSPORIN [Concomitant]
     Active Substance: CYCLOSPORINE
     Indication: GRAFT VERSUS HOST DISEASE
     Dosage: 60 MG, QD
     Route: 042
     Dates: start: 20170921, end: 20171122
  2. HYDREA [Concomitant]
     Active Substance: HYDROXYUREA
     Indication: PALLIATIVE CARE
     Dosage: 500 MG, QD
     Route: 048
     Dates: start: 20171022, end: 20171122
  3. DEFITELIO [Suspect]
     Active Substance: DEFIBROTIDE SODIUM
     Indication: PROPHYLAXIS
     Dosage: 25 MG/KG, QD
     Dates: start: 20170529, end: 20170703
  4. MORPHINE [Concomitant]
     Active Substance: MORPHINE
     Indication: PALLIATIVE CARE
     Dosage: 0.8 MG, QD
     Route: 042
     Dates: start: 20171023, end: 20171122

REACTIONS (6)
  - General physical health deterioration [Unknown]
  - Pyrexia [Unknown]
  - Acute myeloid leukaemia recurrent [Fatal]
  - Graft versus host disease in skin [Unknown]
  - Somnolence [Unknown]
  - Graft versus host disease in gastrointestinal tract [Unknown]

NARRATIVE: CASE EVENT DATE: 201709
